FAERS Safety Report 4945391-8 (Version None)
Quarter: 2006Q1

REPORT INFORMATION
  Report Type: 
  Country: None (occurrence: None)
  Receive Date: 20060315
  Receipt Date: 20060315
  Transmission Date: 20060701
  Serious: Yes (Hospitalization)
  Sender: FDA-Public Use
  Company Number: None

PATIENT
  Age: 79 Year
  Sex: Male
  Weight: 101 kg

DRUGS (3)
  1. MORPHINE SULFATE [Suspect]
     Indication: COMPRESSION FRACTURE
     Dosage: 15MG PO BID
     Route: 048
  2. MORPHINE SULFATE [Suspect]
     Indication: PAIN
     Dosage: 15MG PO BID
     Route: 048
  3. MORPHINE SULFATE [Suspect]
     Dosage: 10MG PO Q 2HOURS PRN
     Route: 048

REACTIONS (2)
  - MENTAL STATUS CHANGES [None]
  - OVERDOSE [None]
